FAERS Safety Report 8522571-6 (Version None)
Quarter: 2012Q3

REPORT INFORMATION
  Report Type: 
  Country: None (occurrence: None)
  Receive Date: 20120719
  Receipt Date: 20120710
  Transmission Date: 20120928
  Serious: Yes (Death)
  Sender: FDA-Public Use
  Company Number: IT-CELGENEUS-083-21880-12071085

PATIENT
  Sex: Male

DRUGS (6)
  1. REVLIMID [Suspect]
     Indication: MYELODYSPLASTIC SYNDROME
     Dosage: 10 MILLIGRAM
     Route: 048
     Dates: start: 20090119, end: 20110426
  2. SULFAMETHOXAZOLE AND TRIMETHOPRIM [Concomitant]
     Route: 048
     Dates: start: 20110609, end: 20111017
  3. LAMIVUDINA [Concomitant]
     Route: 048
     Dates: start: 20110609, end: 20111017
  4. PREDNISONE [Concomitant]
     Route: 048
     Dates: start: 20110609, end: 20111017
  5. ALLOPURINOL [Concomitant]
     Route: 048
     Dates: start: 20110609, end: 20111017
  6. DARBEPOETIN ALFA [Concomitant]
     Route: 058
     Dates: start: 20110609, end: 20111017

REACTIONS (1)
  - MYELODYSPLASTIC SYNDROME [None]
